FAERS Safety Report 18430687 (Version 3)
Quarter: 2020Q4

REPORT INFORMATION
  Report Type: Spontaneous
  Country: JP (occurrence: JP)
  Receive Date: 20201027
  Receipt Date: 20201118
  Transmission Date: 20210114
  Serious: Yes (Hospitalization, Other)
  Sender: FDA-Public Use
  Company Number: JP-PFIZER INC-2020414379

PATIENT
  Age: 23 Year
  Sex: Female

DRUGS (2)
  1. SOLANAX [Suspect]
     Active Substance: ALPRAZOLAM
     Dosage: PRESUMABLY 30-50 TABLETS
     Route: 048
     Dates: start: 19911012
  2. HALCION [Interacting]
     Active Substance: TRIAZOLAM
     Dosage: PRESUMABLY 50-100 TABLETS
     Route: 048
     Dates: start: 19911012

REACTIONS (9)
  - Coma [Recovered/Resolved]
  - Hypoxia [Recovered/Resolved]
  - Vomiting [Unknown]
  - Hypoaesthesia [Not Recovered/Not Resolved]
  - Joint range of motion decreased [Not Recovered/Not Resolved]
  - Compartment syndrome [Recovered/Resolved with Sequelae]
  - Alcohol interaction [Unknown]
  - Overdose [Unknown]
  - Decubitus ulcer [Unknown]
